FAERS Safety Report 15146900 (Version 1)
Quarter: 2018Q3

REPORT INFORMATION
  Report Type: Other
  Country: FR (occurrence: FR)
  Receive Date: 20180716
  Receipt Date: 20180716
  Transmission Date: 20181010
  Serious: Yes (Other)
  Sender: FDA-Public Use
  Company Number: FR-DEXPHARM-20180512

PATIENT
  Age: 34 Year

DRUGS (8)
  1. POSACONAZOLE [Interacting]
     Active Substance: POSACONAZOLE
  2. IVACAFTOR/LUMACAFTOR [Concomitant]
     Active Substance: IVACAFTOR\LUMACAFTOR
     Indication: LUNG DISORDER
  3. OMEPRAZOLE. [Suspect]
     Active Substance: OMEPRAZOLE
  4. POSACONAZOLE [Interacting]
     Active Substance: POSACONAZOLE
  5. POSACONAZOLE [Interacting]
     Active Substance: POSACONAZOLE
     Dosage: 300MG TWICE DAILY ON THE FIRST DAY AND THEN 300MG ONCE DAILY
  6. ITRACONAZOLE. [Concomitant]
     Active Substance: ITRACONAZOLE
     Indication: PROPHYLAXIS
  7. IVACAFTOR/LUMACAFTOR [Concomitant]
     Active Substance: IVACAFTOR\LUMACAFTOR
     Indication: CYSTIC FIBROSIS
  8. POSACONAZOLE [Interacting]
     Active Substance: POSACONAZOLE

REACTIONS (1)
  - Drug interaction [Recovered/Resolved]
